FAERS Safety Report 24197216 (Version 1)
Quarter: 2024Q3

REPORT INFORMATION
  Report Type: Spontaneous
  Country: US (occurrence: US)
  Receive Date: 20240810
  Receipt Date: 20240810
  Transmission Date: 20241016
  Serious: Yes (Other)
  Sender: UCB
  Company Number: US-UCBSA-2024038476

PATIENT
  Sex: Female
  Weight: 98.095 kg

DRUGS (1)
  1. CIMZIA [Suspect]
     Active Substance: CERTOLIZUMAB PEGOL
     Indication: Rheumatoid arthritis
     Dosage: 2 MILLILITER, EV 4 WEEKS
     Route: 058
     Dates: start: 202304

REACTIONS (2)
  - Knee operation [Unknown]
  - Intentional dose omission [Unknown]
